FAERS Safety Report 23328622 (Version 1)
Quarter: 2023Q4

REPORT INFORMATION
  Report Type: Report from Study
  Country: US (occurrence: US)
  Receive Date: 20231221
  Receipt Date: 20231221
  Transmission Date: 20240110
  Serious: No
  Sender: FDA-Public Use
  Company Number: US-ALXN-A202310049

PATIENT
  Sex: Female

DRUGS (1)
  1. ULTOMIRIS [Suspect]
     Active Substance: RAVULIZUMAB-CWVZ
     Indication: Myasthenia gravis
     Dosage: UNK
     Route: 065

REACTIONS (7)
  - Shoulder fracture [Unknown]
  - Fall [Unknown]
  - Gait disturbance [Unknown]
  - Muscular weakness [Unknown]
  - Drug ineffective [Unknown]
  - General physical health deterioration [Unknown]
  - Asthenia [Unknown]
